FAERS Safety Report 7225825-9 (Version None)
Quarter: 2011Q1

REPORT INFORMATION
  Report Type: 
  Country: None (occurrence: None)
  Receive Date: 20110113
  Receipt Date: 20110107
  Transmission Date: 20110831
  Serious: Yes (Other)
  Sender: FDA-Public Use
  Company Number: US-ELI_LILLY_AND_COMPANY-US201011007460

PATIENT
  Sex: Female

DRUGS (1)
  1. HUMALOG MIX 75/25 [Suspect]

REACTIONS (1)
  - CONVULSION [None]
